FAERS Safety Report 5622850-6 (Version None)
Quarter: 2008Q1

REPORT INFORMATION
  Report Type: 
  Country: None (occurrence: None)
  Receive Date: 20080208
  Receipt Date: 20080208
  Transmission Date: 20080703
  Serious: No
  Sender: FDA-Public Use
  Company Number: None

PATIENT
  Age: 70 Year
  Sex: Male
  Weight: 58.9676 kg

DRUGS (1)
  1. RISPERDAL [Suspect]
     Dosage: 2MG Q12 PO
     Route: 048
     Dates: start: 20080110, end: 20080111

REACTIONS (3)
  - MOVEMENT DISORDER [None]
  - MUSCLE RIGIDITY [None]
  - TREMOR [None]
